FAERS Safety Report 10959864 (Version 2)
Quarter: 2015Q1

REPORT INFORMATION
  Report Type: Spontaneous
  Country: BR (occurrence: BR)
  Receive Date: 20150327
  Receipt Date: 20150331
  Transmission Date: 20150721
  Serious: Yes (Death)
  Sender: FDA-Public Use
  Company Number: BR-ACCORD-029624

PATIENT
  Age: 60 Year
  Sex: Female
  Weight: 66 kg

DRUGS (1)
  1. PACLITAXEL/PACLITAXEL LIPOSOME [Suspect]
     Active Substance: PACLITAXEL
     Indication: INVASIVE PAPILLARY BREAST CARCINOMA
     Dosage: STRENGTH: 6 MG/ML?FOURTH WEEK OF PACLITAXEL USE :16-MAR-2015
     Route: 042
     Dates: start: 20150220

REACTIONS (3)
  - Agitation [Fatal]
  - Hypotension [Fatal]
  - Chest pain [Fatal]

NARRATIVE: CASE EVENT DATE: 20130316
